FAERS Safety Report 9097699 (Version 19)
Quarter: 2017Q1

REPORT INFORMATION
  Report Type: Report from Study
  Country: CA (occurrence: CA)
  Receive Date: 20130212
  Receipt Date: 20170102
  Transmission Date: 20170429
  Serious: Yes (Other)
  Sender: FDA-Public Use
  Company Number: CA-ROCHE-1190048

PATIENT
  Age: 74 Year
  Sex: Female
  Weight: 79.4 kg

DRUGS (19)
  1. COVERSYL [Concomitant]
     Active Substance: PERINDOPRIL
  2. VOLTAREN [Concomitant]
     Active Substance: DICLOFENAC SODIUM
  3. RITUXAN [Suspect]
     Active Substance: RITUXIMAB
     Route: 042
     Dates: start: 20141120
  4. PARIET [Concomitant]
     Active Substance: RABEPRAZOLE SODIUM
  5. DIPHENHYDRAMINE HCL [Concomitant]
     Active Substance: DIPHENHYDRAMINE HYDROCHLORIDE
     Indication: PREMEDICATION
     Route: 048
     Dates: start: 20130110
  6. PENICILLAMINE [Concomitant]
     Active Substance: PENICILLAMINE
     Route: 065
     Dates: start: 2016
  7. SINGULAIR [Concomitant]
     Active Substance: MONTELUKAST SODIUM
  8. CRESTOR [Concomitant]
     Active Substance: ROSUVASTATIN CALCIUM
  9. ACETAMINOPHEN. [Concomitant]
     Active Substance: ACETAMINOPHEN
     Indication: PREMEDICATION
     Route: 048
     Dates: start: 20130110
  10. FOLIC ACID. [Concomitant]
     Active Substance: FOLIC ACID
  11. METHYLPREDNISOLONE. [Concomitant]
     Active Substance: METHYLPREDNISOLONE
     Indication: PREMEDICATION
     Route: 042
     Dates: start: 20130110
  12. PREDNISONE. [Concomitant]
     Active Substance: PREDNISONE
  13. GABAPENTIN. [Concomitant]
     Active Substance: GABAPENTIN
     Route: 065
     Dates: end: 2016
  14. CELEBREX [Concomitant]
     Active Substance: CELECOXIB
  15. RITUXAN [Suspect]
     Active Substance: RITUXIMAB
     Route: 042
     Dates: start: 20150521
  16. ZOLOFT [Concomitant]
     Active Substance: SERTRALINE HYDROCHLORIDE
  17. SYNTHROID [Concomitant]
     Active Substance: LEVOTHYROXINE SODIUM
  18. RITUXAN [Suspect]
     Active Substance: RITUXIMAB
     Indication: RHEUMATOID ARTHRITIS
     Dosage: LAST DOSE OF THE INFUSION WAS ON 31/OCT/2013.?LAST DOSE OF RITUXIMAB INFUSION: 21/MAY/2015.
     Route: 042
     Dates: start: 20130110
  19. METHYLPREDNISOLONE. [Concomitant]
     Active Substance: METHYLPREDNISOLONE
     Route: 042
     Dates: start: 20131031

REACTIONS (12)
  - Retinal detachment [Not Recovered/Not Resolved]
  - Foot fracture [Not Recovered/Not Resolved]
  - Rash [Unknown]
  - Arthralgia [Not Recovered/Not Resolved]
  - Rheumatoid arthritis [Unknown]
  - Fall [Unknown]
  - Respiratory rate increased [Unknown]
  - Tooth disorder [Unknown]
  - Infusion related reaction [Unknown]
  - Oxygen saturation decreased [Unknown]
  - Blood pressure fluctuation [Unknown]
  - Pain [Not Recovered/Not Resolved]

NARRATIVE: CASE EVENT DATE: 20130204
